FAERS Safety Report 11746602 (Version 7)
Quarter: 2015Q4

REPORT INFORMATION
  Report Type: Spontaneous
  Country: US (occurrence: US)
  Receive Date: 20151117
  Receipt Date: 20151207
  Transmission Date: 20160304
  Serious: Yes (Hospitalization)
  Sender: FDA-Public Use
  Company Number: US-JNJFOC-20151111928

PATIENT
  Age: 76 Year
  Sex: Female
  Weight: 69.49 kg

DRUGS (8)
  1. OXALIPLATIN. [Concomitant]
     Active Substance: OXALIPLATIN
     Dosage: 2 HOURS ON DAY 1
     Route: 042
  2. FOLFOX [Concomitant]
     Active Substance: FLUOROURACIL\LEUCOVORIN CALCIUM\OXALIPLATIN
     Dosage: CYCLE 2
     Route: 065
  3. FLUOROURACIL. [Concomitant]
     Active Substance: FLUOROURACIL
     Dosage: OVER 46-48 HOURS ON DAY 1
     Route: 042
  4. XARELTO [Suspect]
     Active Substance: RIVAROXABAN
     Indication: ATRIAL FIBRILLATION
     Route: 048
  5. CELEBREX [Suspect]
     Active Substance: CELECOXIB
     Indication: PRODUCT USED FOR UNKNOWN INDICATION
     Dosage: CONTINUED TO 3 YEARS
     Route: 048
     Dates: start: 20150928, end: 20150928
  6. FOLINIC ACID [Concomitant]
     Active Substance: LEUCOVORIN
     Dosage: OVER 2 HOURS ON DAY 1
     Route: 042
  7. XARELTO [Suspect]
     Active Substance: RIVAROXABAN
     Indication: CEREBROVASCULAR ACCIDENT PROPHYLAXIS
     Route: 048
  8. FLUOROURACIL. [Concomitant]
     Active Substance: FLUOROURACIL
     Dosage: IVP ON DAY1
     Route: 050

REACTIONS (1)
  - Splenic haematoma [Not Recovered/Not Resolved]

NARRATIVE: CASE EVENT DATE: 20150929
